FAERS Safety Report 5752645-4 (Version None)
Quarter: 2008Q2

REPORT INFORMATION
  Report Type: 
  Country: None (occurrence: None)
  Receive Date: 20080529
  Receipt Date: 20080521
  Transmission Date: 20081010
  Serious: Yes (Other)
  Sender: FDA-Public Use
  Company Number: US-ASTRAZENECA-2008UW10534

PATIENT
  Age: 44 Year
  Sex: Female

DRUGS (12)
  1. PULMICORT FLEXHALER [Suspect]
     Indication: COUGH
     Route: 055
  2. FLOVENT [Suspect]
  3. PREDNISONE TAB [Suspect]
  4. XOPENEX [Concomitant]
  5. DIOVAN [Concomitant]
  6. ALLEGRA [Concomitant]
  7. SINGULAIR [Concomitant]
  8. NASONEX [Concomitant]
  9. VICODIN [Concomitant]
  10. NEXIUM [Concomitant]
  11. VERAPAMIL [Concomitant]
  12. CARISPRODAL [Concomitant]

REACTIONS (1)
  - LOSS OF CONSCIOUSNESS [None]
